FAERS Safety Report 8113386-1 (Version None)
Quarter: 2012Q1

REPORT INFORMATION
  Report Type: 
  Country: None (occurrence: None)
  Receive Date: 20120203
  Receipt Date: 20120130
  Transmission Date: 20120608
  Serious: Yes (Other)
  Sender: FDA-Public Use
  Company Number: PHFR2011GB05211

PATIENT
  Age: 43 Year
  Sex: Male

DRUGS (2)
  1. TEGRETOL [Suspect]
     Dosage: 200 MG, UNK
  2. TEGRETOL [Suspect]
     Dosage: 400 MG, UNK

REACTIONS (1)
  - CONVULSION [None]
